FAERS Safety Report 6975792-8 (Version None)
Quarter: 2010Q3

REPORT INFORMATION
  Report Type: 
  Country: None (occurrence: None)
  Receive Date: 20100910
  Receipt Date: 20090406
  Transmission Date: 20110219
  Serious: No
  Sender: FDA-Public Use
  Company Number: US-WYE-H08849009

PATIENT
  Sex: Male
  Weight: 72.64 kg

DRUGS (8)
  1. PRISTIQ [Suspect]
     Indication: DEPRESSION
     Route: 048
     Dates: start: 20090324
  2. HYDROCHLOROTHIAZIDE [Concomitant]
  3. AVELOX [Concomitant]
  4. SINGULAIR [Concomitant]
  5. MAXALT [Concomitant]
  6. PREDNISONE [Concomitant]
  7. LISINOPRIL [Concomitant]
  8. REBIF [Concomitant]

REACTIONS (9)
  - ABNORMAL SENSATION IN EYE [None]
  - BALANCE DISORDER [None]
  - DISTURBANCE IN ATTENTION [None]
  - DIZZINESS [None]
  - HEADACHE [None]
  - HEART RATE INCREASED [None]
  - NAUSEA [None]
  - PHOTOPHOBIA [None]
  - VOMITING [None]
